FAERS Safety Report 7636760-6 (Version None)
Quarter: 2011Q3

REPORT INFORMATION
  Report Type: 
  Country: None (occurrence: None)
  Receive Date: 20110722
  Receipt Date: 20110722
  Transmission Date: 20111222
  Serious: Yes (Other)
  Sender: FDA-Public Use
  Company Number: None

PATIENT
  Sex: Female
  Weight: 48.9885 kg

DRUGS (1)
  1. DOXYCYCLINE HCL [Suspect]
     Indication: ACNE
     Dosage: 100 MG 1 CAPSULE 2 TIMES DAILY MOUTH
     Route: 048
     Dates: start: 20110501, end: 20110604

REACTIONS (5)
  - DEPRESSION [None]
  - SUICIDAL IDEATION [None]
  - OEDEMA PERIPHERAL [None]
  - PHOTOSENSITIVITY REACTION [None]
  - FATIGUE [None]
